FAERS Safety Report 8129999-7 (Version None)
Quarter: 2012Q1

REPORT INFORMATION
  Report Type: 
  Country: None (occurrence: None)
  Receive Date: 20120210
  Receipt Date: 20120202
  Transmission Date: 20120608
  Serious: Yes (Other)
  Sender: FDA-Public Use
  Company Number: BR-ROCHE-1028436

PATIENT
  Sex: Female

DRUGS (6)
  1. XOLAIR [Suspect]
     Indication: ASTHMA
  2. FORASEQ (BRAZIL) [Concomitant]
     Dosage: 12/400 MCG
  3. COMBIVENT [Concomitant]
  4. LOSARTAN POTASSIUM [Concomitant]
  5. OMEPRAZOLE [Concomitant]
  6. SINGULAIR [Concomitant]

REACTIONS (4)
  - ASTHMATIC CRISIS [None]
  - FEAR [None]
  - ARTHRITIS [None]
  - FATIGUE [None]
